FAERS Safety Report 22209942 (Version 1)
Quarter: 2023Q2

REPORT INFORMATION
  Report Type: Spontaneous
  Country: GB (occurrence: GB)
  Receive Date: 20230414
  Receipt Date: 20230414
  Transmission Date: 20230721
  Serious: Yes (Hospitalization)
  Sender: FDA-Public Use
  Company Number: None

PATIENT
  Age: 59 Year
  Sex: Female

DRUGS (10)
  1. IBUPROFEN [Suspect]
     Active Substance: IBUPROFEN
     Indication: Product used for unknown indication
     Route: 065
  2. ACETAMINOPHEN [Suspect]
     Active Substance: ACETAMINOPHEN
     Indication: Product used for unknown indication
     Dosage: 1G TDS 5 DAYS
     Route: 065
  3. CARVEDILOL [Suspect]
     Active Substance: CARVEDILOL
     Indication: Cirrhosis alcoholic
     Dosage: 3.125MG TABLETS ONE TO BE TAKEN TWICE A DAY 56 TABLET
     Route: 065
  4. FOLIC ACID [Suspect]
     Active Substance: FOLIC ACID
     Indication: Blood folate abnormal
     Dosage: ONE TO BE TAKEN EACH DAY 28 TABLET
     Route: 065
  5. THIAMINE [Suspect]
     Active Substance: THIAMINE
     Indication: Alcoholism
     Dosage: 100MG TABLETS ONE TO BE TAKEN THREE TIMES A DAY 84 TABLET
     Route: 065
  6. FIDAXOMICIN [Suspect]
     Active Substance: FIDAXOMICIN
     Indication: Product used for unknown indication
     Dosage: 200MG BD 7 DAYS
     Route: 065
     Dates: start: 20221106
  7. OMEPRAZOLE [Suspect]
     Active Substance: OMEPRAZOLE
     Indication: Product used for unknown indication
     Dosage: 40MG OM
     Route: 065
  8. GUAR GUM [Suspect]
     Active Substance: GUAR GUM
     Indication: Product used for unknown indication
     Dosage: 10G DAILY 40 DAYS
     Route: 065
  9. AMOXICILLIN [Suspect]
     Active Substance: AMOXICILLIN
     Indication: Helicobacter infection
     Dosage: 2G BD 7 DAYS
     Route: 065
     Dates: start: 20221112
  10. CLARITHROMYCIN [Suspect]
     Active Substance: CLARITHROMYCIN
     Indication: Product used for unknown indication
     Dosage: 500MG BD 7 DAYS
     Route: 065

REACTIONS (1)
  - Duodenal ulcer perforation [Recovered/Resolved]
